FAERS Safety Report 13841399 (Version 5)
Quarter: 2018Q1

REPORT INFORMATION
  Report Type: Report from Study
  Country: US (occurrence: CA)
  Receive Date: 20170807
  Receipt Date: 20180322
  Transmission Date: 20180508
  Serious: Yes (Hospitalization, Other)
  Sender: FDA-Public Use
  Company Number: US-SUNOVION-2017SUN003475

PATIENT
  Age: 39 Year
  Sex: Female

DRUGS (12)
  1. CETIRIZINE [Concomitant]
     Active Substance: CETIRIZINE HYDROCHLORIDE
  2. PREDNISONE. [Suspect]
     Active Substance: PREDNISONE
     Dosage: 0.5 DF, QD
     Route: 065
     Dates: start: 20150318
  3. SINGULAIR [Concomitant]
     Active Substance: MONTELUKAST SODIUM
  4. XOLAIR [Suspect]
     Active Substance: OMALIZUMAB
     Indication: ASTHMA
     Dosage: 375 MG EVERY 2 WEEKS
     Route: 058
     Dates: start: 20150303
  5. XOLAIR [Suspect]
     Active Substance: OMALIZUMAB
     Dosage: UNK
     Route: 058
     Dates: start: 20150503, end: 2017
  6. LORAZEPAM. [Concomitant]
     Active Substance: LORAZEPAM
  7. PREDNISONE. [Suspect]
     Active Substance: PREDNISONE
     Indication: PRODUCT USED FOR UNKNOWN INDICATION
     Dosage: 1 DF, QD
     Route: 065
     Dates: start: 20150313
  8. BREO ELLIPTA [Concomitant]
     Active Substance: FLUTICASONE FUROATE\VILANTEROL TRIFENATATE
  9. SALBUTAMOL [Concomitant]
     Active Substance: ALBUTEROL
  10. CYPROTERONE [Concomitant]
     Active Substance: CYPROTERONE
  11. INDACATEROL AND GLYCOPYRROLATE [Suspect]
     Active Substance: GLYCOPYRROLATE\INDACATEROL MALEATE
     Indication: PRODUCT USED FOR UNKNOWN INDICATION
     Dosage: UNK, REGIMEN #1
     Route: 065
  12. RABEPRAZOLE [Concomitant]
     Active Substance: RABEPRAZOLE

REACTIONS (30)
  - Pancreatitis necrotising [Unknown]
  - Painful respiration [Unknown]
  - Productive cough [Unknown]
  - Haemoglobin decreased [Unknown]
  - Headache [Unknown]
  - Flank pain [Unknown]
  - Malaise [Unknown]
  - Blood glucose increased [Unknown]
  - Pancreatitis [Not Recovered/Not Resolved]
  - Lung infection [Unknown]
  - Hyper IgE syndrome [Unknown]
  - Dyspnoea at rest [Unknown]
  - Abdominal pain upper [Unknown]
  - Pain [Unknown]
  - Wheezing [Unknown]
  - Insomnia [Unknown]
  - Effusion [Unknown]
  - Chest pain [Unknown]
  - Eye infection [Recovering/Resolving]
  - Rhinorrhoea [Unknown]
  - Facial pain [Unknown]
  - Ocular hyperaemia [Unknown]
  - Rhinitis allergic [Unknown]
  - Urticaria [Recovered/Resolved]
  - Lymphadenopathy [Unknown]
  - Weight decreased [Unknown]
  - Eye discharge [Recovering/Resolving]
  - Red cell distribution width increased [Unknown]
  - Forced expiratory volume decreased [Unknown]
  - Pancreatic pseudocyst [Unknown]

NARRATIVE: CASE EVENT DATE: 201503
